FAERS Safety Report 24122907 (Version 1)
Quarter: 2024Q3

REPORT INFORMATION
  Report Type: Spontaneous
  Country: FR (occurrence: FR)
  Receive Date: 20240723
  Receipt Date: 20240723
  Transmission Date: 20241017
  Serious: No
  Sender: ALKEM
  Company Number: FR-ALKEM LABORATORIES LIMITED-FR-ALKEM-2023-08425

PATIENT
  Age: 43 Year
  Sex: Female

DRUGS (3)
  1. DRONABINOL [Suspect]
     Active Substance: DRONABINOL
     Indication: Neuralgia
     Dosage: 2.5 MILLIGRAM, BID (CAPSULE MOLLE/CAPSULE SOFT)
     Route: 065
  2. DRONABINOL [Suspect]
     Active Substance: DRONABINOL
     Dosage: 1 DOSAGE FORM, QD, (DAILY IN THE EVENING), CAPSULE
     Route: 065
  3. DRONABINOL [Suspect]
     Active Substance: DRONABINOL
     Dosage: 2.5 MILLIGRAM (CAPSULE MOLLE)
     Route: 065
     Dates: end: 20230915

REACTIONS (4)
  - Memory impairment [Unknown]
  - Somnolence [Recovered/Resolved]
  - Off label use [Unknown]
  - Underdose [Unknown]
